FAERS Safety Report 8336357-9 (Version None)
Quarter: 2012Q2

REPORT INFORMATION
  Report Type: 
  Country: None (occurrence: None)
  Receive Date: 20120504
  Receipt Date: 20120427
  Transmission Date: 20120825
  Serious: Yes (Hospitalization, Other)
  Sender: FDA-Public Use
  Company Number: US-BAYER-2011-102197

PATIENT
  Age: 20 Year
  Sex: Female
  Weight: 51.701 kg

DRUGS (8)
  1. PENICILLIN G POTASSIUM [Concomitant]
     Dosage: 5 MILLIUNITS THEN 2.5 MILLIUNITS [EVERY] 4 HOURS UNTIL DELIVERY
     Route: 042
     Dates: start: 20080829
  2. PITOCIN [Concomitant]
     Dosage: UNK
     Dates: start: 20080829
  3. YAZ [Suspect]
     Dosage: UNK
     Route: 048
     Dates: start: 20080911, end: 20081016
  4. NIFEDIPINE [Concomitant]
     Indication: PREMATURE BABY
     Dosage: 60 MG, TID
  5. MULTI-VITAMINS [Concomitant]
  6. BETAMETHASONE [Concomitant]
     Dosage: TWO DOSES
  7. MAGNESIUM SULFATE [Concomitant]
  8. XYLOCAINE [Concomitant]
     Dosage: UNK
     Dates: start: 20080829

REACTIONS (5)
  - DEEP VEIN THROMBOSIS [None]
  - INJURY [None]
  - ANHEDONIA [None]
  - EMOTIONAL DISTRESS [None]
  - PAIN [None]
